FAERS Safety Report 11137024 (Version 1)
Quarter: 2015Q2

REPORT INFORMATION
  Report Type: Spontaneous
  Country: US (occurrence: US)
  Receive Date: 20150526
  Receipt Date: 20150526
  Transmission Date: 20150821
  Serious: No
  Sender: FDA-Public Use
  Company Number: US-MALLINCKRODT-T201501504

PATIENT
  Age: 45 Year
  Sex: Male
  Weight: 95 kg

DRUGS (8)
  1. NORVASC [Concomitant]
     Active Substance: AMLODIPINE BESYLATE
  2. H.P. ACTHAR [Suspect]
     Active Substance: CORTICOTROPIN
     Indication: RENAL DISORDER
     Dosage: 80 UNITS, TWICE WKLY
     Route: 058
     Dates: start: 20150219, end: 20150317
  3. PLAQUENIL [Concomitant]
     Active Substance: HYDROXYCHLOROQUINE SULFATE
  4. H.P. ACTHAR [Suspect]
     Active Substance: CORTICOTROPIN
     Indication: SYSTEMIC LUPUS ERYTHEMATOSUS
  5. LABETALOL [Concomitant]
     Active Substance: LABETALOL\LABETALOL HYDROCHLORIDE
  6. CLONIDINE. [Concomitant]
     Active Substance: CLONIDINE
  7. H.P. ACTHAR [Suspect]
     Active Substance: CORTICOTROPIN
     Indication: PROTEINURIA
     Dosage: 20 UNITS, DAILY INTO THE BACK OF THE ARM
     Route: 058
     Dates: start: 20150318
  8. CELLCEPT [Concomitant]
     Active Substance: MYCOPHENOLATE MOFETIL\MYCOPHENOLATE MOFETIL HYDROCHLORIDE

REACTIONS (8)
  - Malaise [Unknown]
  - Mood altered [Unknown]
  - Diarrhoea [Unknown]
  - Contusion [Unknown]
  - Fatigue [Unknown]
  - Drug withdrawal syndrome [Not Recovered/Not Resolved]
  - Blood glucose increased [Unknown]
  - Skin lesion [Unknown]

NARRATIVE: CASE EVENT DATE: 201502
